FAERS Safety Report 4998383-7 (Version None)
Quarter: 2006Q2

REPORT INFORMATION
  Report Type: 
  Country: None (occurrence: None)
  Receive Date: 20060508
  Receipt Date: 20060424
  Transmission Date: 20061013
  Serious: Yes (Other)
  Sender: FDA-Public Use
  Company Number: 2006056590

PATIENT
  Age: 74 Year
  Sex: Female

DRUGS (8)
  1. PREDNISOLONE [Suspect]
     Indication: SURGERY
     Dosage: (4 IN 1 D) OPTHALAMIC
     Route: 047
  2. LIDOCAINE [Suspect]
     Indication: LOCAL ANAESTHESIA
     Dosage: 4 ML
  3. BUPIVACAINE [Suspect]
     Indication: LOCAL ANAESTHESIA
     Dosage: 4 ML
  4. HYALURONIDASE [Suspect]
     Indication: LOCAL ANAESTHESIA
     Dosage: 500 IU
  5. POVIDONE IODINE [Suspect]
     Indication: ENDOPHTHALMITIS
     Dosage: INTRAOCULAR
     Route: 031
  6. CHLORAMPHENICOL [Suspect]
     Indication: SURGERY
     Dosage: 4 IN 1 D OPTHALAMIC
     Route: 047
  7. PROXYMETACAINE (PROXYMETACAINE) [Concomitant]
  8. CEFUROXIME [Concomitant]

REACTIONS (8)
  - CONJUNCTIVAL OEDEMA [None]
  - DISCOMFORT [None]
  - EXOPHTHALMOS [None]
  - INTRAOCULAR PRESSURE TEST ABNORMAL [None]
  - MUSCLE SWELLING [None]
  - OPTIC NERVE DISORDER [None]
  - PAROPHTHALMIA [None]
  - VISUAL ACUITY TESTS NORMAL [None]
